FAERS Safety Report 17884866 (Version 1)
Quarter: 2020Q2

REPORT INFORMATION
  Report Type: Spontaneous
  Country: US (occurrence: US)
  Receive Date: 20200611
  Receipt Date: 20200611
  Transmission Date: 20200714
  Serious: No
  Sender: FDA-Public Use
  Company Number: None

PATIENT
  Age: 70 Year
  Sex: Female
  Weight: 67.5 kg

DRUGS (16)
  1. ANASTROZOLE. [Concomitant]
     Active Substance: ANASTROZOLE
  2. ACYCLOVIR. [Concomitant]
     Active Substance: ACYCLOVIR
  3. METOPROLOL. [Concomitant]
     Active Substance: METOPROLOL
  4. POTASSIUM [Concomitant]
     Active Substance: POTASSIUM
  5. DEXAMETHASONE. [Concomitant]
     Active Substance: DEXAMETHASONE
  6. PREDNISONE. [Concomitant]
     Active Substance: PREDNISONE
  7. FOLIC ACID. [Concomitant]
     Active Substance: FOLIC ACID
  8. LASIX [Concomitant]
     Active Substance: FUROSEMIDE
  9. HYDROCODONE BITARTRATE AND ACETAMINOPHEN [Concomitant]
     Active Substance: ACETAMINOPHEN\HYDROCODONE BITARTRATE
  10. LOPERAMIDE [Concomitant]
     Active Substance: LOPERAMIDE
  11. TUMS [Concomitant]
     Active Substance: CALCIUM CARBONATE
  12. VIT D [Concomitant]
     Active Substance: VITAMIN D NOS
  13. MIRTAZAPINE. [Concomitant]
     Active Substance: MIRTAZAPINE
  14. AMLODIPINE [Concomitant]
     Active Substance: AMLODIPINE BESYLATE
  15. NINLARO [Suspect]
     Active Substance: IXAZOMIB CITRATE
     Indication: PRODUCT USED FOR UNKNOWN INDICATION
     Dates: start: 20200518, end: 20200611
  16. VALSARTAN. [Concomitant]
     Active Substance: VALSARTAN

REACTIONS (1)
  - Hospitalisation [None]

NARRATIVE: CASE EVENT DATE: 20200611
